FAERS Safety Report 8828146 (Version 2)
Quarter: 2012Q4

REPORT INFORMATION
  Report Type: 
  Country: US (occurrence: US)
  Receive Date: 20121005
  Receipt Date: 20121010
  Transmission Date: 20130627
  Serious: Yes (Hospitalization, Other)
  Sender: FDA-Public Use
  Company Number: US-PFIZER INC-2012245085

PATIENT
  Age: 38 Year
  Sex: Female
  Weight: 90.7 kg

DRUGS (1)
  1. PROTONIX [Suspect]
     Indication: HIATUS HERNIA
     Dosage: 40 mg, 2x/day

REACTIONS (1)
  - Colitis ulcerative [Unknown]
